FAERS Safety Report 15392418 (Version 1)
Quarter: 2018Q3

REPORT INFORMATION
  Report Type: Spontaneous
  Country: US (occurrence: US)
  Receive Date: 20180917
  Receipt Date: 20180917
  Transmission Date: 20181010
  Serious: No
  Sender: FDA-Public Use
  Company Number: US-DUCHESNAY INC.-2055000

PATIENT
  Age: 35 Year
  Sex: Female
  Weight: 70.46 kg

DRUGS (1)
  1. DICLEGIS [Suspect]
     Active Substance: DOXYLAMINE SUCCINATE\PYRIDOXINE HYDROCHLORIDE
     Route: 048
     Dates: start: 201808, end: 201809

REACTIONS (1)
  - Uterine spasm [Recovered/Resolved]

NARRATIVE: CASE EVENT DATE: 201808
